FAERS Safety Report 6301245-6 (Version None)
Quarter: 2009Q3

REPORT INFORMATION
  Report Type: 
  Country: None (occurrence: None)
  Receive Date: 20090806
  Receipt Date: 20090806
  Transmission Date: 20100115
  Serious: Yes (Disabling, Other)
  Sender: FDA-Public Use
  Company Number: None

PATIENT
  Sex: Male
  Weight: 83.9154 kg

DRUGS (1)
  1. LEVAQUIN [Suspect]
     Indication: PNEUMONIA
     Dosage: 250 MG 1 EVERY OTHER DAY FOR 6 DAYS
     Dates: start: 20090217, end: 20090225

REACTIONS (2)
  - MUSCULOSKELETAL DISCOMFORT [None]
  - PAIN [None]
